FAERS Safety Report 4755050-2 (Version None)
Quarter: 2005Q3

REPORT INFORMATION
  Report Type: 
  Country: None (occurrence: None)
  Receive Date: 20050826
  Receipt Date: 20031201
  Transmission Date: 20060218
  Serious: Yes (Death)
  Sender: FDA-Public Use
  Company Number: USA-2003-0011779

PATIENT
  Age: 37 Year
  Sex: Male
  Weight: 100.2 kg

DRUGS (8)
  1. OXYCODONE HCL [Suspect]
  2. MORPHINE SULFATE [Suspect]
  3. HYDROCODONE BITARTRATE [Suspect]
  4. HYDROMORPHONE HYDROCHLORIDE [Suspect]
  5. ALPRAZOLAM [Suspect]
  6. ACETAMINOPHEN [Suspect]
  7. NICOTINE [Suspect]
  8. CAFFEINE (CAFFEINE) [Suspect]

REACTIONS (2)
  - MULTIPLE DRUG OVERDOSE ACCIDENTAL [None]
  - OVERDOSE [None]
